FAERS Safety Report 8078123-8 (Version None)
Quarter: 2012Q1

REPORT INFORMATION
  Report Type: 
  Country: None (occurrence: None)
  Receive Date: 20120127
  Receipt Date: 20110117
  Transmission Date: 20120608
  Serious: No
  Sender: FDA-Public Use
  Company Number: US-ABBOTT-10P-163-0688700-00

PATIENT
  Age: 61 Year
  Sex: Female

DRUGS (7)
  1. NEXIUM [Concomitant]
     Indication: ULCER
  2. METHYLPHENADATE [Concomitant]
     Indication: ENERGY INCREASED
  3. HUMIRA [Suspect]
     Indication: RHEUMATOID ARTHRITIS
     Dates: start: 20100301
  4. HYDROCODONE [Concomitant]
     Indication: PAIN
  5. GABAPENTIN [Concomitant]
     Indication: PRODUCT USED FOR UNKNOWN INDICATION
  6. SYMBYAX [Concomitant]
     Indication: DEPRESSION
  7. XANAX [Concomitant]
     Indication: NERVOUSNESS

REACTIONS (5)
  - INJECTION SITE PAIN [None]
  - ARTHRALGIA [None]
  - DEVICE MALFUNCTION [None]
  - GAIT DISTURBANCE [None]
  - DRUG DOSE OMISSION [None]
